FAERS Safety Report 8123775-7 (Version None)
Quarter: 2012Q1

REPORT INFORMATION
  Report Type: 
  Country: None (occurrence: None)
  Receive Date: 20120208
  Receipt Date: 20120201
  Transmission Date: 20120608
  Serious: Yes (Other)
  Sender: FDA-Public Use
  Company Number: US-ASTRAZENECA-2010SE11947

PATIENT
  Age: 72 Year
  Sex: Female

DRUGS (4)
  1. CRESTOR [Suspect]
     Route: 048
  2. IRON [Concomitant]
  3. CRESTOR [Suspect]
     Route: 048
  4. METFORMIN HCL [Concomitant]

REACTIONS (4)
  - DIZZINESS [None]
  - MALAISE [None]
  - CEREBROVASCULAR ACCIDENT [None]
  - DIARRHOEA [None]
